FAERS Safety Report 21897464 (Version 1)
Quarter: 2023Q1

REPORT INFORMATION
  Report Type: Other
  Country: DK (occurrence: DK)
  Receive Date: 20230123
  Receipt Date: 20230123
  Transmission Date: 20230418
  Serious: Yes (Congenital Anomaly, Other)
  Sender: FDA-Public Use
  Company Number: DK-DKMA-WBS-0090724

PATIENT
  Age: 17 Week

DRUGS (4)
  1. TACROLIMUS [Suspect]
     Active Substance: TACROLIMUS
     Indication: Habitual abortion
     Dosage: DOSE: 2 AND 3 MG ALTERNATING DAILY STRENGTH: 1 MG
     Route: 064
     Dates: start: 20210424
  2. TACROLIMUS [Suspect]
     Active Substance: TACROLIMUS
     Dosage: DOSE: 2 AND 3 MG ALTERNATING DAILY STRENGTH: 1 MG
     Route: 064
     Dates: start: 20210424
  3. ONDANSETRON [Concomitant]
     Active Substance: ONDANSETRON
     Indication: Hyperemesis gravidarum
     Dosage: 4 MG X 3 AS NECESSARY
     Route: 065
     Dates: start: 20210719
  4. CYCLIZINE HYDROCHLORIDE [Concomitant]
     Active Substance: CYCLIZINE HYDROCHLORIDE
     Indication: Hyperemesis gravidarum
     Dosage: 50 MILLIGRAM
     Route: 065
     Dates: start: 20210719

REACTIONS (4)
  - Renal dysplasia [Not Recovered/Not Resolved]
  - Foetal exposure during pregnancy [Not Recovered/Not Resolved]
  - Off label use [Unknown]
  - Product use issue [Unknown]

NARRATIVE: CASE EVENT DATE: 20210927
